FAERS Safety Report 6527829-8 (Version None)
Quarter: 2010Q1

REPORT INFORMATION
  Report Type: 
  Country: None (occurrence: None)
  Receive Date: 20100105
  Receipt Date: 20100105
  Transmission Date: 20100710
  Serious: Yes (Other)
  Sender: FDA-Public Use
  Company Number: None

PATIENT
  Age: 66 Year
  Sex: Male
  Weight: 172.3669 kg

DRUGS (2)
  1. TYLENOL (CAPLET) [Suspect]
     Indication: ARTHRITIS
     Dosage: 2 TABLETS ONCE ADAY PO
     Route: 048
     Dates: start: 20080101, end: 20091222
  2. TYLENOL (CAPLET) [Suspect]

REACTIONS (5)
  - ABDOMINAL PAIN UPPER [None]
  - DIARRHOEA [None]
  - INFLUENZA LIKE ILLNESS [None]
  - NAUSEA [None]
  - PRODUCT QUALITY ISSUE [None]
